FAERS Safety Report 23393919 (Version 28)
Quarter: 2025Q1

REPORT INFORMATION
  Report Type: Spontaneous
  Country: IN (occurrence: IN)
  Receive Date: 20240111
  Receipt Date: 20250121
  Transmission Date: 20250409
  Serious: Yes (Other)
  Sender: PFIZER
  Company Number: IN-PFIZER INC-PV202300178659

PATIENT
  Age: 53 Year
  Sex: Male
  Weight: 63 kg

DRUGS (21)
  1. LORLATINIB [Suspect]
     Active Substance: LORLATINIB
     Indication: Non-small cell lung cancer stage IV
     Dosage: 100 MG, 1X/DAY
     Route: 048
     Dates: start: 20231024
  2. LORLATINIB [Suspect]
     Active Substance: LORLATINIB
     Dosage: 50 MG, 1X/DAY
     Route: 048
  3. LORLATINIB [Suspect]
     Active Substance: LORLATINIB
     Dosage: 75 MG, 1X/DAY
     Route: 048
  4. LORLATINIB [Suspect]
     Active Substance: LORLATINIB
     Dosage: 100 MG, 1X/DAY
     Route: 048
     Dates: start: 20231116
  5. LORLATINIB [Suspect]
     Active Substance: LORLATINIB
     Dosage: 75 MG, 1X/DAY
     Route: 048
  6. LORLATINIB [Suspect]
     Active Substance: LORLATINIB
     Dosage: 100 MG, DAILY
     Route: 048
  7. LORLATINIB [Suspect]
     Active Substance: LORLATINIB
     Dosage: 75 MG, 1X/DAY
     Route: 048
  8. LORLATINIB [Suspect]
     Active Substance: LORLATINIB
     Dosage: 100 MG, 1X/DAY
     Route: 048
  9. LEVOTHYROXINE [Concomitant]
     Active Substance: LEVOTHYROXINE
     Indication: Thyroid disorder
     Dates: start: 20231106
  10. ZOLPIDEM TARTRATE [Concomitant]
     Active Substance: ZOLPIDEM TARTRATE
  11. ATORVASTATIN [Concomitant]
     Active Substance: ATORVASTATIN
  12. ATORVASTATIN CALCIUM [Concomitant]
     Active Substance: ATORVASTATIN CALCIUM
     Indication: Blood cholesterol abnormal
     Dates: start: 20231106
  13. LIVOGEN [SACCHARATED IRON OXIDE] [Concomitant]
     Indication: Iron deficiency
     Dates: start: 20231106
  14. IRON [Concomitant]
     Active Substance: IRON
  15. CALCIUM [Concomitant]
     Active Substance: CALCIUM
  16. TURKEY TAIL MUSHROOM [Concomitant]
  17. PARANORM [DEXTROMETHORPHAN HYDROBROMIDE;EPHEDRINE HYDROCHLORIDE;GUAIFE [Concomitant]
  18. BARICITINIB [Concomitant]
     Active Substance: BARICITINIB
  19. TURKEY TAIL [Concomitant]
  20. LIVOGEN [FERROUS FUMARATE;FOLIC ACID] [Concomitant]
  21. D RISE [Concomitant]

REACTIONS (92)
  - Infection [Unknown]
  - Postoperative wound infection [Recovering/Resolving]
  - Haematemesis [Recovered/Resolved]
  - Blood cholesterol increased [Not Recovered/Not Resolved]
  - Muscle atrophy [Not Recovered/Not Resolved]
  - Blister [Recovered/Resolved]
  - Asthenia [Recovering/Resolving]
  - Fatigue [Recovered/Resolved]
  - Memory impairment [Not Recovered/Not Resolved]
  - Thinking abnormal [Not Recovered/Not Resolved]
  - Nausea [Not Recovered/Not Resolved]
  - Anxiety [Unknown]
  - Dyspnoea exertional [Recovered/Resolved]
  - Neck pain [Unknown]
  - Musculoskeletal chest pain [Unknown]
  - Hunger [Not Recovered/Not Resolved]
  - Blood uric acid increased [Not Recovered/Not Resolved]
  - Nail discolouration [Recovered/Resolved]
  - Red blood cell sedimentation rate increased [Not Recovered/Not Resolved]
  - Throat irritation [Recovering/Resolving]
  - Dysphagia [Recovering/Resolving]
  - Sleep-related hypoventilation [Recovering/Resolving]
  - Abdominal discomfort [Recovered/Resolved]
  - Food poisoning [Recovered/Resolved]
  - Nasopharyngitis [Recovering/Resolving]
  - Oedema peripheral [Recovered/Resolved]
  - Hypotonia [Unknown]
  - Mood swings [Unknown]
  - Body height decreased [Unknown]
  - Dysphonia [Unknown]
  - Oropharyngeal pain [Unknown]
  - Dysarthria [Unknown]
  - Furuncle [Recovered/Resolved]
  - Lung disorder [Recovering/Resolving]
  - Tongue disorder [Unknown]
  - Gastrooesophageal reflux disease [Unknown]
  - Blood glucose increased [Not Recovered/Not Resolved]
  - Glycosylated haemoglobin increased [Not Recovered/Not Resolved]
  - Stress [Not Recovered/Not Resolved]
  - Dyspnoea [Recovering/Resolving]
  - Dysstasia [Unknown]
  - Pulmonary pain [Unknown]
  - Back pain [Recovering/Resolving]
  - Emotional disorder [Unknown]
  - Onychoclasis [Recovered/Resolved]
  - Muscle spasms [Recovered/Resolved]
  - Myalgia [Recovered/Resolved]
  - Anger [Not Recovered/Not Resolved]
  - Malaise [Recovered/Resolved]
  - Hyperhidrosis [Not Recovered/Not Resolved]
  - Axillary pain [Unknown]
  - Chest discomfort [Recovered/Resolved]
  - Respiratory tract congestion [Recovered/Resolved]
  - Musculoskeletal stiffness [Recovering/Resolving]
  - Arthritis [Recovering/Resolving]
  - Weight fluctuation [Not Recovered/Not Resolved]
  - Arthralgia [Recovered/Resolved]
  - Pain in extremity [Recovered/Resolved]
  - Inflammation [Not Recovered/Not Resolved]
  - Gait inability [Recovered/Resolved]
  - Full blood count decreased [Not Recovered/Not Resolved]
  - Lipids increased [Not Recovered/Not Resolved]
  - Blood bilirubin decreased [Not Recovered/Not Resolved]
  - Blood urine present [Not Recovered/Not Resolved]
  - Urinary sediment present [Not Recovered/Not Resolved]
  - Vitamin D decreased [Not Recovered/Not Resolved]
  - Hypokinesia [Not Recovered/Not Resolved]
  - Gait disturbance [Recovering/Resolving]
  - Thyroxine increased [Recovered/Resolved]
  - Insomnia [Recovered/Resolved]
  - Haemoglobin decreased [Not Recovered/Not Resolved]
  - Joint swelling [Recovered/Resolved]
  - Arthropathy [Recovering/Resolving]
  - Sleep disorder [Recovered/Resolved]
  - Thyroid hormones increased [Not Recovered/Not Resolved]
  - Speech disorder [Recovered/Resolved]
  - Irritability [Unknown]
  - Swelling face [Not Recovered/Not Resolved]
  - Respiration abnormal [Recovering/Resolving]
  - Amnesia [Unknown]
  - Productive cough [Recovering/Resolving]
  - Cough [Recovering/Resolving]
  - Fluid retention [Recovered/Resolved]
  - Discomfort [Recovered/Resolved]
  - Binge eating [Not Recovered/Not Resolved]
  - Weight loss poor [Not Recovered/Not Resolved]
  - Weight increased [Not Recovered/Not Resolved]
  - Swelling [Not Recovered/Not Resolved]
  - Total lung capacity decreased [Not Recovered/Not Resolved]
  - Respiratory rate increased [Not Recovered/Not Resolved]
  - Decreased activity [Not Recovered/Not Resolved]
  - Neoplasm progression [Recovered/Resolved]

NARRATIVE: CASE EVENT DATE: 20230101
